FAERS Safety Report 25623331 (Version 3)
Quarter: 2025Q3

REPORT INFORMATION
  Report Type: Spontaneous
  Country: US (occurrence: US)
  Receive Date: 20250730
  Receipt Date: 20250922
  Transmission Date: 20251021
  Serious: Yes (Other)
  Sender: PFIZER
  Company Number: US-PFIZER INC-PV202500090155

PATIENT
  Sex: Male

DRUGS (1)
  1. HYMPAVZI [Suspect]
     Active Substance: MARSTACIMAB-HNCQ
     Indication: Factor VIII deficiency
     Route: 058
     Dates: start: 202412

REACTIONS (2)
  - Haemarthrosis [Recovered/Resolved]
  - Drug ineffective [Recovered/Resolved]

NARRATIVE: CASE EVENT DATE: 20250101
